FAERS Safety Report 9839100 (Version 4)
Quarter: 2014Q2

REPORT INFORMATION
  Report Type: Spontaneous
  Country: CA (occurrence: CA)
  Receive Date: 20140123
  Receipt Date: 20140610
  Transmission Date: 20141212
  Serious: Yes (Death, Other)
  Sender: FDA-Public Use
  Company Number: CA-GILEAD-2014-0092832

PATIENT
  Age: 62 Year
  Sex: Female
  Weight: 118.2 kg

DRUGS (9)
  1. AMBRISENTAN [Suspect]
     Indication: PULMONARY ARTERIAL HYPERTENSION
     Dosage: 10 MG, QD
     Route: 048
     Dates: start: 20130822
  2. PREDNISONE [Concomitant]
  3. ADCIRCA [Concomitant]
  4. CRESTOR [Concomitant]
  5. ADALAT XL [Concomitant]
  6. CETIRIZINE [Concomitant]
  7. ASPIRIN [Concomitant]
  8. METFORMIN [Concomitant]
  9. LASIX                              /00032601/ [Concomitant]

REACTIONS (11)
  - Death [Fatal]
  - Lower respiratory tract infection [Recovering/Resolving]
  - Lymphoma [Unknown]
  - Breast cancer [Unknown]
  - Lung neoplasm malignant [Unknown]
  - Ear infection [Recovering/Resolving]
  - Dry throat [Unknown]
  - Throat irritation [Unknown]
  - Cough [Unknown]
  - Painful respiration [Unknown]
  - Dyspnoea [Unknown]
